FAERS Safety Report 25457611 (Version 1)
Quarter: 2025Q2

REPORT INFORMATION
  Report Type: Report from Study
  Country: AT (occurrence: AT)
  Receive Date: 20250619
  Receipt Date: 20250619
  Transmission Date: 20250717
  Serious: Yes (Other)
  Sender: CELLTRION
  Company Number: AT-ROCHE-10000184664

PATIENT
  Age: 74 Year

DRUGS (2)
  1. TRASTUZUMAB [Suspect]
     Active Substance: TRASTUZUMAB
     Indication: Breast cancer
     Dates: start: 20231207
  2. PERTUZUMAB [Suspect]
     Active Substance: PERTUZUMAB
     Indication: Breast cancer
     Dates: start: 20231207

REACTIONS (10)
  - Neutropenia [Unknown]
  - Polyneuropathy [Unknown]
  - Oropharyngeal pain [Unknown]
  - Decubitus ulcer [Unknown]
  - Flushing [Unknown]
  - Stomatitis [Unknown]
  - Rash pruritic [Unknown]
  - Taste disorder [Unknown]
  - Nausea [Unknown]
  - Urinary tract infection [Unknown]

NARRATIVE: CASE EVENT DATE: 20231210
